FAERS Safety Report 13016908 (Version 3)
Quarter: 2017Q1

REPORT INFORMATION
  Report Type: Spontaneous
  Country: FR (occurrence: FR)
  Receive Date: 20161212
  Receipt Date: 20170123
  Transmission Date: 20170428
  Serious: Yes (Hospitalization)
  Sender: FDA-Public Use
  Company Number: FR-009507513-1612FRA003332

PATIENT
  Age: 56 Year
  Sex: Female
  Weight: 56 kg

DRUGS (8)
  1. PERFALGAN [Concomitant]
     Active Substance: ACETAMINOPHEN
     Indication: NECK PAIN
  2. PERFALGAN [Concomitant]
     Active Substance: ACETAMINOPHEN
     Indication: HEADACHE
     Dosage: 1 DOSE AT EMERGENCY UNIT
     Dates: start: 20161124, end: 20161124
  3. STROMECTOL [Suspect]
     Active Substance: IVERMECTIN
     Indication: ACARODERMATITIS
     Dosage: 4 TABLETS, 2 INTAKES
     Route: 048
     Dates: start: 201607, end: 201607
  4. STROMECTOL [Suspect]
     Active Substance: IVERMECTIN
     Dosage: UNK
     Route: 048
  5. DIPROSONE [Concomitant]
     Active Substance: BETAMETHASONE DIPROPIONATE
     Dosage: UNK
     Route: 061
     Dates: start: 201611
  6. AERIUS [Concomitant]
     Active Substance: DESLORATADINE
     Dosage: UNK
     Route: 048
     Dates: start: 201611
  7. TRANXENE T-TAB [Concomitant]
     Active Substance: CLORAZEPATE DIPOTASSIUM
     Indication: PARAESTHESIA
     Dosage: 1 DOSE AT EMERGENCY UNIT
     Dates: start: 20161124, end: 20161124
  8. STROMECTOL [Suspect]
     Active Substance: IVERMECTIN
     Dosage: AT LEAST 4 TABLETS, 3 TIMES
     Route: 048
     Dates: start: 201611, end: 201611

REACTIONS (3)
  - Social avoidant behaviour [Recovering/Resolving]
  - Delirium [Recovering/Resolving]
  - Persecutory delusion [Recovering/Resolving]

NARRATIVE: CASE EVENT DATE: 201611
